FAERS Safety Report 23488685 (Version 1)
Quarter: 2024Q1

REPORT INFORMATION
  Report Type: Spontaneous
  Country: JP (occurrence: JP)
  Receive Date: 20240206
  Receipt Date: 20240206
  Transmission Date: 20240409
  Serious: Yes (Other)
  Sender: FDA-Public Use
  Company Number: JP-Eisai-202313464_FYC_P_1

PATIENT
  Age: 28 Year
  Sex: Female

DRUGS (1)
  1. FYCOMPA [Suspect]
     Active Substance: PERAMPANEL
     Indication: Product used for unknown indication
     Route: 048
     Dates: start: 202212, end: 202306

REACTIONS (2)
  - Aggression [Unknown]
  - Irritability [Unknown]
